FAERS Safety Report 6915871-4 (Version None)
Quarter: 2010Q3

REPORT INFORMATION
  Report Type: 
  Country: None (occurrence: None)
  Receive Date: 20100810
  Receipt Date: 20100809
  Transmission Date: 20110219
  Serious: Yes (Death)
  Sender: FDA-Public Use
  Company Number: JP-BAYER-201010010BYL

PATIENT
  Age: 66 Year
  Sex: Male
  Weight: 56 kg

DRUGS (7)
  1. NEXAVAR [Suspect]
     Indication: HEPATIC NEOPLASM MALIGNANT
     Dosage: TOTAL DAILY DOSE: 800 MG  UNIT DOSE: 200 MG
     Route: 048
     Dates: start: 20091218, end: 20091229
  2. OXYCONTIN [Concomitant]
     Indication: PAIN MANAGEMENT
     Dosage: 10-150MG/DAY
     Route: 048
     Dates: start: 20091202, end: 20100118
  3. TEGRETOL [Concomitant]
     Indication: NEURALGIA
     Route: 048
     Dates: start: 20091214, end: 20091228
  4. AMOXAN [Concomitant]
     Indication: DEPRESSION
     Route: 048
     Dates: start: 20091222, end: 20091228
  5. ZOMETA [Concomitant]
     Indication: PAIN MANAGEMENT
     Route: 042
     Dates: start: 20091020
  6. ZOMETA [Concomitant]
     Route: 042
     Dates: start: 20091116
  7. ZOMETA [Concomitant]
     Route: 042
     Dates: start: 20091216

REACTIONS (1)
  - INTERSTITIAL LUNG DISEASE [None]
